FAERS Safety Report 19881840 (Version 1)
Quarter: 2021Q3

REPORT INFORMATION
  Report Type: Other
  Country: SG (occurrence: SG)
  Receive Date: 20210924
  Receipt Date: 20210924
  Transmission Date: 20211014
  Serious: Yes (Hospitalization)
  Sender: FDA-Public Use
  Company Number: SG-B.BRAUN MEDICAL INC.-2118791

PATIENT
  Age: 25 Year
  Sex: Female
  Weight: 53.5 kg

DRUGS (1)
  1. ACETAMINOPHEN. [Suspect]
     Active Substance: ACETAMINOPHEN

REACTIONS (4)
  - Agitation [Recovered/Resolved]
  - Drug clearance decreased [Recovered/Resolved]
  - Dystonia [Recovered/Resolved]
  - Overdose [Recovered/Resolved]
